FAERS Safety Report 12925518 (Version 1)
Quarter: 2016Q4

REPORT INFORMATION
  Report Type: Spontaneous
  Country: US (occurrence: US)
  Receive Date: 20161108
  Receipt Date: 20161108
  Transmission Date: 20170207
  Serious: No
  Sender: FDA-Public Use
  Company Number: US-SA-2016SA160129

PATIENT
  Age: 65 Year
  Sex: Female

DRUGS (2)
  1. PRALUENT [Suspect]
     Active Substance: ALIROCUMAB
     Indication: HYPERCHOLESTEROLAEMIA
     Dosage: DOSE:75 MILLIGRAM(S)/MILLILITRE
     Route: 058
     Dates: start: 201607, end: 201607
  2. ALIROCUMAB PREFILLED PEN [Concomitant]
     Active Substance: ALIROCUMAB
     Indication: HYPERCHOLESTEROLAEMIA
     Dates: start: 201607, end: 201607

REACTIONS (5)
  - Discomfort [Unknown]
  - Muscle spasms [Unknown]
  - Myalgia [Unknown]
  - Paraesthesia [Unknown]
  - Feeling abnormal [Unknown]

NARRATIVE: CASE EVENT DATE: 2016
